FAERS Safety Report 12927969 (Version 2)
Quarter: 2016Q4

REPORT INFORMATION
  Report Type: Spontaneous
  Country: JP (occurrence: JP)
  Receive Date: 20161110
  Receipt Date: 20161130
  Transmission Date: 20170207
  Serious: Yes (Other)
  Sender: FDA-Public Use
  Company Number: JP-ROCHE-1832964

PATIENT
  Age: 10 Year
  Sex: Female
  Weight: 42 kg

DRUGS (19)
  1. PREDONINE [Suspect]
     Active Substance: PREDNISOLONE\PREDNISOLONE ACETATE\PREDNISOLONE SODIUM SUCCINATE
     Indication: JUVENILE IDIOPATHIC ARTHRITIS
     Dosage: UNCERTAIN DOSAGE (AT ONSET AND EXACERBATION).
     Route: 048
     Dates: start: 201304
  2. COLCHICINE. [Concomitant]
     Active Substance: COLCHICINE
     Indication: JUVENILE IDIOPATHIC ARTHRITIS
     Dosage: THE FRACTIONATION DOSE FREQUENCY IS UNCERTAIN.
     Route: 065
     Dates: end: 201601
  3. ACTEMRA [Suspect]
     Active Substance: TOCILIZUMAB
     Route: 041
     Dates: start: 20160129
  4. ACTEMRA [Suspect]
     Active Substance: TOCILIZUMAB
     Route: 041
     Dates: start: 20160630
  5. ACTEMRA [Suspect]
     Active Substance: TOCILIZUMAB
     Route: 041
     Dates: start: 20160712
  6. NEORAL [Concomitant]
     Active Substance: CYCLOSPORINE
     Indication: JUVENILE IDIOPATHIC ARTHRITIS
     Dosage: FRACTIONATION DOSE UNCERTAIN FREQUENCY AND DOSE INTERVAL UNCERTAINTY
     Route: 065
     Dates: start: 2014, end: 201404
  7. PREDONINE [Suspect]
     Active Substance: PREDNISOLONE\PREDNISOLONE ACETATE\PREDNISOLONE SODIUM SUCCINATE
     Indication: JUVENILE IDIOPATHIC ARTHRITIS
     Dosage: FRACTIONATION DOSE UNCERTAIN FREQUENCY AND DOSE INTERVAL UNCERTAINTY
     Route: 048
     Dates: start: 20160818, end: 20160910
  8. SOLU-CORTEF [Concomitant]
     Active Substance: HYDROCORTISONE SODIUM SUCCINATE
     Indication: PROPHYLAXIS
     Dosage: IT USES BEFORE ADMINISTRATING ACTEMRA.
     Route: 042
     Dates: start: 20160129
  9. NIPOLAZIN [Concomitant]
     Indication: PROPHYLAXIS
     Dosage: IT USES BEFORE ADMINISTRATING ACTEMRA.
     Route: 048
     Dates: start: 20160129, end: 20160629
  10. ACTEMRA [Suspect]
     Active Substance: TOCILIZUMAB
     Indication: JUVENILE IDIOPATHIC ARTHRITIS
     Dosage: DOSAGE IS UNCERTAIN.
     Route: 041
     Dates: start: 20130707, end: 20130730
  11. ACTEMRA [Suspect]
     Active Substance: TOCILIZUMAB
     Dosage: 17.5 ML
     Route: 041
     Dates: start: 20160603
  12. PREDONINE [Suspect]
     Active Substance: PREDNISOLONE\PREDNISOLONE ACETATE\PREDNISOLONE SODIUM SUCCINATE
     Indication: JUVENILE IDIOPATHIC ARTHRITIS
     Dosage: FRACTIONATION DOSE UNCERTAIN FREQUENCY AND DOSE INTERVAL UNCERTAINTY
     Route: 048
     Dates: start: 20160528, end: 20160603
  13. SINGULAIR [Concomitant]
     Active Substance: MONTELUKAST SODIUM
     Indication: PROPHYLAXIS
     Dosage: IT USES BEFORE ADMINISTRATING ACTEMRA.
     Route: 048
     Dates: start: 20160128
  14. NEORAL [Concomitant]
     Active Substance: CYCLOSPORINE
     Indication: JUVENILE IDIOPATHIC ARTHRITIS
     Dosage: FRACTIONATION DOSE UNCERTAIN FREQUENCY AND DOSE INTERVAL UNCERTAINTY
     Route: 065
     Dates: start: 201402, end: 2014
  15. PREDONINE [Suspect]
     Active Substance: PREDNISOLONE\PREDNISOLONE ACETATE\PREDNISOLONE SODIUM SUCCINATE
     Indication: JUVENILE IDIOPATHIC ARTHRITIS
     Dosage: FRACTIONATION DOSE UNCERTAIN FREQUENCY AND DOSE INTERVAL UNCERTAINTY
     Route: 048
     Dates: start: 20161015
  16. COLCHICINE. [Concomitant]
     Active Substance: COLCHICINE
     Indication: JUVENILE IDIOPATHIC ARTHRITIS
     Dosage: FRACTIONATION DOSE UNCERTAIN FREQUENCY AND DOSE INTERVAL UNCERTAINTY
     Route: 065
     Dates: start: 201406
  17. PREDONINE [Suspect]
     Active Substance: PREDNISOLONE\PREDNISOLONE ACETATE\PREDNISOLONE SODIUM SUCCINATE
     Indication: JUVENILE IDIOPATHIC ARTHRITIS
     Dosage: FRACTIONATION DOSE UNCERTAIN FREQUENCY AND DOSE INTERVAL UNCERTAINTY
     Route: 048
     Dates: start: 20160604, end: 20160817
  18. PREDONINE [Suspect]
     Active Substance: PREDNISOLONE\PREDNISOLONE ACETATE\PREDNISOLONE SODIUM SUCCINATE
     Indication: JUVENILE IDIOPATHIC ARTHRITIS
     Dosage: FRACTIONATION DOSE UNCERTAIN FREQUENCY AND DOSE INTERVAL UNCERTAINTY
     Route: 048
     Dates: start: 20160911, end: 20161014
  19. COLCHICINE. [Concomitant]
     Active Substance: COLCHICINE
     Indication: JUVENILE IDIOPATHIC ARTHRITIS
     Dosage: FRACTIONATION DOSE UNCERTAIN FREQUENCY AND DOSE INTERVAL UNCERTAINTY
     Route: 065

REACTIONS (5)
  - Generalised erythema [Not Recovered/Not Resolved]
  - Osteoporosis [Not Recovered/Not Resolved]
  - Rash [Recovering/Resolving]
  - Dyspnoea [Recovered/Resolved]
  - Hypertension [Not Recovered/Not Resolved]

NARRATIVE: CASE EVENT DATE: 20130717
